FAERS Safety Report 13111884 (Version 2)
Quarter: 2018Q1

REPORT INFORMATION
  Report Type: Spontaneous
  Country: CA (occurrence: CA)
  Receive Date: 20170113
  Receipt Date: 20180104
  Transmission Date: 20180508
  Serious: Yes (Other)
  Sender: FDA-Public Use
  Company Number: CA-ROCHE-1877825

PATIENT
  Age: 42 Year
  Sex: Female

DRUGS (7)
  1. XOLAIR [Suspect]
     Active Substance: OMALIZUMAB
     Indication: ASTHMA
     Route: 058
     Dates: start: 20130507
  2. VENTOLIN [Concomitant]
     Active Substance: ALBUTEROL SULFATE
     Indication: PRODUCT USED FOR UNKNOWN INDICATION
     Route: 065
  3. SYMBICORT [Concomitant]
     Active Substance: BUDESONIDE\FORMOTEROL FUMARATE DIHYDRATE
     Indication: PRODUCT USED FOR UNKNOWN INDICATION
     Route: 065
  4. NASONEX [Concomitant]
     Active Substance: MOMETASONE FUROATE
     Indication: PRODUCT USED FOR UNKNOWN INDICATION
     Route: 065
  5. XOLAIR [Suspect]
     Active Substance: OMALIZUMAB
     Route: 058
     Dates: start: 2016
  6. XOLAIR [Suspect]
     Active Substance: OMALIZUMAB
     Route: 058
  7. XOLAIR [Suspect]
     Active Substance: OMALIZUMAB
     Route: 058
     Dates: start: 20171206

REACTIONS (13)
  - Dyspnoea [Unknown]
  - Hypersensitivity [Unknown]
  - Sinusitis [Unknown]
  - Cough [Unknown]
  - Dust allergy [Unknown]
  - Eczema [Recovering/Resolving]
  - Influenza [Unknown]
  - Fatigue [Unknown]
  - Dysphonia [Unknown]
  - Respiratory tract congestion [Unknown]
  - Weight increased [Unknown]
  - Seizure [Unknown]
  - Dermatitis allergic [Unknown]

NARRATIVE: CASE EVENT DATE: 201604
